FAERS Safety Report 25461442 (Version 1)
Quarter: 2025Q2

REPORT INFORMATION
  Report Type: Spontaneous
  Country: IT (occurrence: IT)
  Receive Date: 20250620
  Receipt Date: 20250620
  Transmission Date: 20250716
  Serious: Yes (Life-Threatening)
  Sender: AUROBINDO
  Company Number: IT-MINISAL02-1042997

PATIENT
  Age: 73 Year
  Sex: Male
  Weight: 63 kg

DRUGS (12)
  1. BISOPROLOL [Suspect]
     Active Substance: BISOPROLOL
     Indication: Atrial flutter
     Route: 048
  2. PANTOPRAZOLE [Suspect]
     Active Substance: PANTOPRAZOLE
     Indication: Prophylaxis against gastrointestinal ulcer
     Route: 042
  3. ACETAMINOPHEN [Suspect]
     Active Substance: ACETAMINOPHEN
     Indication: Pain
     Route: 042
     Dates: start: 20250114, end: 20250128
  4. OLMESARTAN [Suspect]
     Active Substance: OLMESARTAN
     Indication: Hypertension
     Route: 048
  5. ARIXTRA [Suspect]
     Active Substance: FONDAPARINUX SODIUM
     Indication: Atrial fibrillation
     Route: 058
     Dates: start: 20250118, end: 20250131
  6. ARIXTRA [Suspect]
     Active Substance: FONDAPARINUX SODIUM
     Indication: Thrombosis prophylaxis
  7. DOXAZOSIN MESYLATE [Suspect]
     Active Substance: DOXAZOSIN MESYLATE
     Indication: Hypertension
     Route: 048
     Dates: start: 20240101
  8. ALLOPURINOL [Suspect]
     Active Substance: ALLOPURINOL
     Indication: Hyperuricaemia
     Route: 048
  9. CEFEPIME [Suspect]
     Active Substance: CEFEPIME HYDROCHLORIDE
     Indication: Infection
     Dosage: 2 GRAM, FOUR TIMES/DAY (2 GR X 4)
     Route: 042
     Dates: start: 20250121, end: 20250214
  10. KETOPROFEN [Suspect]
     Active Substance: KETOPROFEN
     Indication: Pain
     Route: 042
     Dates: start: 20250115, end: 20250228
  11. EZETIMIBE\ROSUVASTATIN [Suspect]
     Active Substance: EZETIMIBE\ROSUVASTATIN
     Indication: Dyslipidaemia
     Route: 048
     Dates: start: 20240101
  12. BARNIDIPINE [Suspect]
     Active Substance: BARNIDIPINE
     Indication: Hypertension
     Route: 048
     Dates: start: 20240101

REACTIONS (2)
  - Spontaneous haematoma [Recovered/Resolved]
  - Off label use [Recovered/Resolved]

NARRATIVE: CASE EVENT DATE: 20250118
